FAERS Safety Report 12949829 (Version 1)
Quarter: 2016Q4

REPORT INFORMATION
  Report Type: Spontaneous
  Country: FR (occurrence: FR)
  Receive Date: 20161117
  Receipt Date: 20161117
  Transmission Date: 20170207
  Serious: Yes (Hospitalization, Other)
  Sender: FDA-Public Use
  Company Number: FR-PFIZER INC-2016517825

PATIENT
  Age: 38 Year
  Sex: Male
  Weight: 87 kg

DRUGS (5)
  1. SALAZOPYRINE [Suspect]
     Active Substance: SULFASALAZINE
     Indication: POLYARTHRITIS
     Dosage: 1 G, DAILY
     Route: 048
     Dates: start: 20160831, end: 20160921
  2. SALAZOPYRINE [Suspect]
     Active Substance: SULFASALAZINE
     Dosage: 2 G, DAILY
     Route: 048
     Dates: start: 20160910, end: 20160921
  3. CORTANCYL [Concomitant]
     Active Substance: PREDNISONE
     Indication: POLYARTHRITIS
     Dosage: 7.5 MG, DAILY
     Dates: start: 201509, end: 20160922
  4. CORTANCYL [Concomitant]
     Active Substance: PREDNISONE
     Dosage: 20 MG, DAILY
     Dates: start: 20160922
  5. APRANAX [Suspect]
     Active Substance: NAPROXEN
     Indication: POLYARTHRITIS
     Dosage: UNK
     Route: 048
     Dates: start: 20160831, end: 20160921

REACTIONS (2)
  - Asthenia [Recovered/Resolved]
  - Drug reaction with eosinophilia and systemic symptoms [Recovered/Resolved]

NARRATIVE: CASE EVENT DATE: 20160916
